FAERS Safety Report 7367668-1 (Version None)
Quarter: 2011Q1

REPORT INFORMATION
  Report Type: 
  Country: None (occurrence: None)
  Receive Date: 20110322
  Receipt Date: 20110318
  Transmission Date: 20110831
  Serious: Yes (Other)
  Sender: FDA-Public Use
  Company Number: US-AMGEN-USASP2011015230

PATIENT
  Sex: Female

DRUGS (2)
  1. NPLATE [Suspect]
     Indication: IDIOPATHIC THROMBOCYTOPENIC PURPURA
     Dosage: UNK A?G, UNK
     Dates: start: 20090512, end: 20100809
  2. CORTICOSTEROIDS [Concomitant]
     Dosage: UNK
     Dates: start: 20060101

REACTIONS (1)
  - THERAPEUTIC RESPONSE DECREASED [None]
